FAERS Safety Report 4538980-6 (Version None)
Quarter: 2004Q4

REPORT INFORMATION
  Report Type: 
  Country: None (occurrence: None)
  Receive Date: 20041222
  Receipt Date: 20041203
  Transmission Date: 20050328
  Serious: Yes (Other)
  Sender: FDA-Public Use
  Company Number: US_0412108882

PATIENT
  Age: 50 Year
  Sex: Female

DRUGS (1)
  1. ZYPREXA [Suspect]
     Indication: SCHIZOPHRENIA
     Dates: start: 20020101, end: 20030101

REACTIONS (3)
  - CEREBROVASCULAR ACCIDENT [None]
  - PANCREATITIS [None]
  - WEIGHT INCREASED [None]
